FAERS Safety Report 6394446-2 (Version None)
Quarter: 2009Q4

REPORT INFORMATION
  Report Type: 
  Country: None (occurrence: None)
  Receive Date: 20091009
  Receipt Date: 20090928
  Transmission Date: 20100525
  Serious: No
  Sender: FDA-Public Use
  Company Number: US-BIOGENIDEC-2009BI007616

PATIENT
  Sex: Female

DRUGS (1)
  1. AVONEX [Suspect]
     Indication: MULTIPLE SCLEROSIS
     Route: 030
     Dates: start: 20050728

REACTIONS (10)
  - DIABETES MELLITUS [None]
  - DIZZINESS [None]
  - DYSPHEMIA [None]
  - DYSPNOEA [None]
  - DYSURIA [None]
  - GAIT DISTURBANCE [None]
  - MEMORY IMPAIRMENT [None]
  - MUSCULAR WEAKNESS [None]
  - RASH [None]
  - URINARY INCONTINENCE [None]
